FAERS Safety Report 4367244-9 (Version None)
Quarter: 2004Q2

REPORT INFORMATION
  Report Type: 
  Country: None (occurrence: None)
  Receive Date: 20040524
  Receipt Date: 20040205
  Transmission Date: 20050107
  Serious: Yes (Hospitalization)
  Sender: FDA-Public Use
  Company Number: M04-341-030

PATIENT
  Age: 36 Year
  Sex: Male
  Weight: 127 kg

DRUGS (5)
  1. VELCADE [Suspect]
     Indication: MULTIPLE MYELOMA
     Dosage: 1.3 MG/M2 BIW: INTRAVENOUS BOLUS
     Route: 040
     Dates: start: 20031031, end: 20031224
  2. DURAGESIC [Concomitant]
  3. MS CONTIN [Concomitant]
  4. OXYCONTIN [Concomitant]
  5. THALIDOMIDE [Concomitant]

REACTIONS (2)
  - ORGAN FAILURE [None]
  - OVERDOSE [None]
